FAERS Safety Report 25717642 (Version 1)
Quarter: 2025Q3

REPORT INFORMATION
  Report Type: Spontaneous
  Country: US (occurrence: US)
  Receive Date: 20250822
  Receipt Date: 20250822
  Transmission Date: 20251021
  Serious: No
  Sender: CALLIDITAS THERAPEUTICS AB
  Company Number: US-Calliditas-2025CAL02457

PATIENT
  Age: 38 Year
  Sex: Male

DRUGS (1)
  1. TARPEYO [Suspect]
     Active Substance: BUDESONIDE
     Indication: IgA nephropathy
     Dosage: 16MG (4MG CAPSULES) ONCE DAILY
     Route: 048
     Dates: start: 20250624

REACTIONS (4)
  - Gout [Unknown]
  - Herpes zoster [Unknown]
  - Sleep deficit [Unknown]
  - Stress [Unknown]

NARRATIVE: CASE EVENT DATE: 20250809
